FAERS Safety Report 9725651 (Version 3)
Quarter: 2014Q1

REPORT INFORMATION
  Report Type: Spontaneous
  Country: US (occurrence: None)
  Receive Date: 20131129
  Receipt Date: 20140130
  Transmission Date: 20141002
  Serious: Yes (Other)
  Sender: FDA-Public Use
  Company Number: ADR-2013-02161

PATIENT
  Age: 53 Year
  Sex: Female

DRUGS (6)
  1. BACLOFEN [Suspect]
     Indication: SPINAL PAIN
     Dosage: 400 MCG/ML, INTRATHECAL PUMP
     Dates: start: 20120430
  2. FENTANYL [Suspect]
     Dosage: 5000 MCG/ML, INTRATHECAL PUMP
     Route: 037
  3. CLONIDINE [Suspect]
     Dosage: 300 MCG/ML
     Route: 037
  4. BUPIVICAINE [Suspect]
     Route: 037
  5. ZOFRAN [Suspect]
     Route: 048
  6. OXYCONTIN [Suspect]
     Route: 048

REACTIONS (11)
  - Influenza [None]
  - Withdrawal syndrome [None]
  - Device kink [None]
  - Insomnia [None]
  - Activities of daily living impaired [None]
  - Nausea [None]
  - Muscle spasms [None]
  - Vomiting [None]
  - Drug ineffective [None]
  - Malaise [None]
  - Back pain [None]
